FAERS Safety Report 12053916 (Version 1)
Quarter: 2016Q1

REPORT INFORMATION
  Report Type: Spontaneous
  Country: US (occurrence: US)
  Receive Date: 20160209
  Receipt Date: 20160209
  Transmission Date: 20160526
  Serious: No
  Sender: FDA-Public Use
  Company Number: US-SA-2015SA222592

PATIENT
  Age: 67 Year
  Sex: Male

DRUGS (2)
  1. PRALUENT [Suspect]
     Active Substance: ALIROCUMAB
     Indication: BLOOD CHOLESTEROL INCREASED
     Route: 065
     Dates: start: 20151217
  2. ALIROCUMAB PREFILLED PEN [Concomitant]
     Active Substance: ALIROCUMAB
     Dates: start: 20151217

REACTIONS (8)
  - Insomnia [Recovered/Resolved]
  - Tendon discomfort [Recovered/Resolved]
  - Musculoskeletal pain [Recovered/Resolved]
  - Abdominal distension [Recovered/Resolved]
  - Pollakiuria [Recovered/Resolved]
  - Wheezing [Recovered/Resolved]
  - Dysgeusia [Recovered/Resolved]
  - Weight increased [Recovered/Resolved]

NARRATIVE: CASE EVENT DATE: 201512
